FAERS Safety Report 7050197-2 (Version None)
Quarter: 2010Q4

REPORT INFORMATION
  Report Type: 
  Country: None (occurrence: None)
  Receive Date: 20101018
  Receipt Date: 20101008
  Transmission Date: 20110411
  Serious: Yes (Other)
  Sender: FDA-Public Use
  Company Number: JP-EISAI INC.-E2020-07696-SPO-JP

PATIENT
  Sex: Male

DRUGS (5)
  1. ARICEPT [Suspect]
     Indication: DEMENTIA
     Route: 048
     Dates: start: 20100913, end: 20100919
  2. LYRICA [Suspect]
     Indication: POST HERPETIC NEURALGIA
     Route: 048
     Dates: start: 20100830, end: 20100924
  3. MORPHINE [Concomitant]
     Dosage: 30 MG DAILY
     Dates: start: 20100928
  4. LOXOPROFEN SODIUM [Concomitant]
     Indication: POST HERPETIC NEURALGIA
     Dosage: 180 MG DAILY
     Dates: start: 20100920, end: 20100921
  5. CODEINE [Concomitant]
     Indication: PRODUCT USED FOR UNKNOWN INDICATION
     Dosage: UNKNOWN

REACTIONS (1)
  - RHABDOMYOLYSIS [None]
